FAERS Safety Report 23347562 (Version 4)
Quarter: 2025Q1

REPORT INFORMATION
  Report Type: Spontaneous
  Country: US (occurrence: US)
  Receive Date: 20231228
  Receipt Date: 20250203
  Transmission Date: 20250408
  Serious: No
  Sender: SANOFI AVENTIS
  Company Number: US-SA-2023SA329171

PATIENT
  Age: 53 Year
  Sex: Female

DRUGS (2)
  1. DUPIXENT [Suspect]
     Active Substance: DUPILUMAB
     Indication: Dermatitis atopic
     Route: 058
  2. DUPIXENT [Suspect]
     Active Substance: DUPILUMAB
     Dosage: 300 MG, QOW
     Route: 058

REACTIONS (14)
  - Dry mouth [Unknown]
  - COVID-19 [Unknown]
  - Psychomotor hyperactivity [Unknown]
  - Abdominal pain upper [Recovering/Resolving]
  - Skin exfoliation [Recovering/Resolving]
  - Pruritus [Unknown]
  - Rash [Unknown]
  - Injection site swelling [Unknown]
  - Dermatitis atopic [Unknown]
  - Alopecia [Unknown]
  - Erythema [Unknown]
  - Insomnia [Unknown]
  - Dry skin [Recovering/Resolving]
  - Product dose omission in error [Unknown]

NARRATIVE: CASE EVENT DATE: 20250127
